FAERS Safety Report 13746748 (Version 2)
Quarter: 2017Q3

REPORT INFORMATION
  Report Type: Spontaneous
  Country: CA (occurrence: CA)
  Receive Date: 20170712
  Receipt Date: 20170822
  Transmission Date: 20171127
  Serious: Yes (Other)
  Sender: FDA-Public Use
  Company Number: CA-HIKMA PHARMACEUTICALS CO. LTD-2017CA009072

PATIENT

DRUGS (10)
  1. INFLECTRA [Suspect]
     Active Substance: INFLIXIMAB-DYYB
     Indication: RHEUMATOID ARTHRITIS
     Dosage: 210 MG, Q 0, 2, 6 WEEKS, THEN EVERY 8 WEEKS
     Route: 042
     Dates: start: 20170515
  2. PANTOLOC                           /01263204/ [Concomitant]
     Active Substance: PANTOPRAZOLE SODIUM
     Dosage: 40 MG, DAILY
     Route: 065
  3. ALPHA HYDROXY ACIDS [Concomitant]
     Dosage: 200 MG, BID
     Route: 065
  4. CHAMPIX [Concomitant]
     Active Substance: VARENICLINE TARTRATE
     Dosage: UNK, DAILY
     Route: 048
  5. METHOTREXATE. [Concomitant]
     Active Substance: METHOTREXATE
     Dosage: UNK, 1/WEEK (FRIDAY)
     Route: 065
  6. GABAPENTIN. [Concomitant]
     Active Substance: GABAPENTIN
     Dosage: 300 MG, DAILY, PRN
     Route: 065
  7. ENBREL [Concomitant]
     Active Substance: ETANERCEPT
     Dosage: 25 MG, 1/WEEK
     Route: 065
  8. MORPHINE [Concomitant]
     Active Substance: MORPHINE
     Dosage: 15 MG, ONCE A DAY/TWICE A DAY, PRN
     Route: 065
  9. PREDNISONE. [Concomitant]
     Active Substance: PREDNISONE
     Dosage: 5 MG, DAILY
     Route: 065
  10. FOLIC ACID. [Concomitant]
     Active Substance: FOLIC ACID
     Dosage: 5 MG, 1/WEEK
     Route: 065

REACTIONS (1)
  - Foot fracture [Unknown]

NARRATIVE: CASE EVENT DATE: 201706
